FAERS Safety Report 18297093 (Version 2)
Quarter: 2020Q3

REPORT INFORMATION
  Report Type: Report from Study
  Country: IE (occurrence: IE)
  Receive Date: 20200922
  Receipt Date: 20200924
  Transmission Date: 20201103
  Serious: Yes (Death, Hospitalization, Other)
  Sender: FDA-Public Use
  Company Number: IE-JNJFOC-20200908307

PATIENT
  Age: 7 Decade
  Sex: Male

DRUGS (1)
  1. STELARA [Suspect]
     Active Substance: USTEKINUMAB
     Indication: PSORIASIS
     Route: 058
     Dates: start: 20200523, end: 20200913

REACTIONS (3)
  - Death [Fatal]
  - Lower respiratory tract infection [Recovered/Resolved]
  - Motor neurone disease [Unknown]

NARRATIVE: CASE EVENT DATE: 202008
